FAERS Safety Report 5688097-2 (Version None)
Quarter: 2008Q1

REPORT INFORMATION
  Report Type: 
  Country: None (occurrence: None)
  Receive Date: 20080327
  Receipt Date: 20080314
  Transmission Date: 20080703
  Serious: Yes (Hospitalization)
  Sender: FDA-Public Use
  Company Number: 2008000339

PATIENT
  Age: 64 Year
  Sex: Male
  Weight: 81 kg

DRUGS (8)
  1. ERLOTINIB (ERLOTINIB) (TABLET) (ERLOTINIB) [Suspect]
     Indication: GLIOBLASTOMA MULTIFORME
     Dosage: (500 MG, QD), ORAL
     Route: 048
     Dates: start: 20071112
  2. SIMVASTATIN [Concomitant]
  3. MIRALAX [Concomitant]
  4. LOVENOX (HEPARIN-F-RACTION, SODIUM [Concomitant]
  5. LORAZEPMA (LORAZEPAM) [Concomitant]
  6. KYTRIL [Concomitant]
  7. KENALOG IN ORABASE (TRIAMCINOLONE ACETONIDE) [Concomitant]
  8. CARBATROL [Concomitant]

REACTIONS (3)
  - DEHYDRATION [None]
  - LEUKOPENIA [None]
  - NEUTROPENIA [None]
